FAERS Safety Report 9792235 (Version 1)
Quarter: 2013Q4

REPORT INFORMATION
  Report Type: Spontaneous
  Country: US (occurrence: None)
  Receive Date: 20131230
  Receipt Date: 20131230
  Transmission Date: 20140711
  Serious: Yes (Life-Threatening, Disabling)
  Sender: FDA-Public Use
  Company Number: 2013P1021769

PATIENT
  Age: 23 Year
  Sex: Male

DRUGS (2)
  1. NALTREXONE [Suspect]
     Indication: SUBSTANCE ABUSE
  2. METHADONE [Suspect]
     Route: 048

REACTIONS (2)
  - Deafness neurosensory [None]
  - Quality of life decreased [None]
